FAERS Safety Report 6649133-X (Version None)
Quarter: 2010Q1

REPORT INFORMATION
  Report Type: 
  Country: None (occurrence: None)
  Receive Date: 20100322
  Receipt Date: 20100312
  Transmission Date: 20100710
  Serious: Yes (Other)
  Sender: FDA-Public Use
  Company Number: 2010SP015700

PATIENT
  Age: 42 Year
  Sex: Female
  Weight: 108.8633 kg

DRUGS (5)
  1. IMPLANON [Suspect]
     Indication: DRUG USE FOR UNKNOWN INDICATION
     Dosage: 1  DF;
     Dates: start: 20080601, end: 20080801
  2. INSULIN [Concomitant]
  3. JANUVIA [Concomitant]
  4. ACTONEL [Concomitant]
  5. GABAPENTIN [Concomitant]

REACTIONS (3)
  - ABORTION SPONTANEOUS [None]
  - DRUG EXPOSURE DURING PREGNANCY [None]
  - PREGNANCY WITH IMPLANT CONTRACEPTIVE [None]
